FAERS Safety Report 10524219 (Version 1)
Quarter: 2014Q4

REPORT INFORMATION
  Report Type: Spontaneous
  Country: US (occurrence: None)
  Receive Date: 20141015
  Receipt Date: 20141015
  Transmission Date: 20150528
  Serious: Yes (Other)
  Sender: FDA-Public Use
  Company Number: FK201403991

PATIENT

DRUGS (1)
  1. DIPRIVAN [Suspect]
     Active Substance: PROPOFOL
     Indication: PRODUCT USED FOR UNKNOWN INDICATION
     Dosage: NOT OTHERWISE SPECIFIED
     Route: 042
     Dates: start: 20141002, end: 20141002

REACTIONS (1)
  - Seizure like phenomena [None]

NARRATIVE: CASE EVENT DATE: 20141002
